FAERS Safety Report 11778537 (Version 1)
Quarter: 2015Q4

REPORT INFORMATION
  Report Type: Spontaneous
  Country: PL (occurrence: PL)
  Receive Date: 20151125
  Receipt Date: 20151125
  Transmission Date: 20160304
  Serious: Yes (Hospitalization)
  Sender: FDA-Public Use
  Company Number: PHHY2015PL151412

PATIENT
  Age: 85 Year
  Sex: Female

DRUGS (8)
  1. ACICLOVIR [Suspect]
     Active Substance: ACYCLOVIR
     Indication: OPHTHALMIC HERPES ZOSTER
     Dosage: FOR 7 DAYS
     Route: 048
  2. BENZOCAINE. [Suspect]
     Active Substance: BENZOCAINE
     Indication: SKIN LESION
     Route: 061
  3. CARBAMAZEPINE. [Suspect]
     Active Substance: CARBAMAZEPINE
     Indication: NEURALGIA
     Dosage: 200 MG, BID
     Route: 048
  4. AMIKACIN [Suspect]
     Active Substance: AMIKACIN
     Dosage: FIVE TIMES DAILY
     Route: 047
  5. TRAMADOL. [Suspect]
     Active Substance: TRAMADOL
     Indication: NEURALGIA
     Dosage: 100 MG, TID
     Route: 048
  6. AMIKACIN [Suspect]
     Active Substance: AMIKACIN
     Indication: HERPES ZOSTER
     Dosage: UNK
     Route: 047
  7. OCTENISEPT [Suspect]
     Active Substance: OCTENIDINE\PHENOXYETHANOL
     Indication: SKIN LESION
     Route: 061
  8. PARACETAMOL SANDOZ [Suspect]
     Active Substance: ACETAMINOPHEN
     Indication: NEURALGIA
     Dosage: 500 MG, TID
     Route: 048

REACTIONS (11)
  - Eyelid oedema [Recovering/Resolving]
  - Pain [Recovering/Resolving]
  - Wound contamination [None]
  - Gastritis [None]
  - Scratch [None]
  - Staphylococcus test positive [None]
  - Blindness unilateral [None]
  - Anaemia megaloblastic [None]
  - Ophthalmic herpes zoster [Recovering/Resolving]
  - Skin lesion [Recovering/Resolving]
  - Condition aggravated [Recovering/Resolving]
